APPROVED DRUG PRODUCT: TUSSIONEX PENNKINETIC
Active Ingredient: CHLORPHENIRAMINE POLISTIREX; HYDROCODONE POLISTIREX
Strength: EQ 8MG MALEATE/5ML;EQ 10MG BITARTRATE/5ML **Federal Register determination that product was not discontinued or withdrawn for safety or effectiveness reasons**
Dosage Form/Route: SUSPENSION, EXTENDED RELEASE;ORAL
Application: N019111 | Product #001
Applicant: UCB INC
Approved: Dec 31, 1987 | RLD: Yes | RS: No | Type: DISCN